FAERS Safety Report 6349744-5 (Version None)
Quarter: 2009Q3

REPORT INFORMATION
  Report Type: 
  Country: None (occurrence: None)
  Receive Date: 20090911
  Receipt Date: 20090908
  Transmission Date: 20100115
  Serious: Yes (Other)
  Sender: FDA-Public Use
  Company Number: GB-B.I. PHARMACEUTICALS,INC./RIDGEFIELD-2009-BP-10654YA

PATIENT
  Age: 60 Year
  Sex: Male

DRUGS (3)
  1. FLOMAX [Suspect]
     Indication: BENIGN PROSTATIC HYPERPLASIA
     Route: 048
     Dates: start: 20090721, end: 20090731
  2. ATORVASTATIN (ATORVASATATIN) [Concomitant]
     Indication: LIPIDS INCREASED
     Dosage: 10 MG
  3. METFORMIN HCL [Concomitant]
     Indication: TYPE 2 DIABETES MELLITUS
     Dosage: 1000 MG

REACTIONS (3)
  - DYSPNOEA [None]
  - HEADACHE [None]
  - RHINITIS [None]
